FAERS Safety Report 15983665 (Version 1)
Quarter: 2019Q1

REPORT INFORMATION
  Report Type: Spontaneous
  Country: IT (occurrence: IT)
  Receive Date: 20190220
  Receipt Date: 20190220
  Transmission Date: 20190418
  Serious: Yes (Other)
  Sender: FDA-Public Use
  Company Number: IT-ORION CORPORATION ORION PHARMA-19_00005624

PATIENT
  Age: 59 Year
  Sex: Male

DRUGS (4)
  1. LEVODOPA-CARBIDOPA-ENTACAPONE MYLAN [Suspect]
     Active Substance: CARBIDOPA\ENTACAPONE\LEVODOPA
     Indication: PARKINSON^S DISEASE
     Dosage: STRENGTH: (125/31.25/200) MG
     Route: 065
  2. LEVODOPA-CARBIDOPA-ENTACAPONE TEVA [Suspect]
     Active Substance: CARBIDOPA\ENTACAPONE\LEVODOPA
     Indication: PARKINSON^S DISEASE
     Dosage: STRENGTH: (125/31.25/200) MG
     Route: 065
  3. LEVODOPA-CARBIDOPA-ENTACAPONE (TRADE NAME UNKNOWN) [Suspect]
     Active Substance: CARBIDOPA\ENTACAPONE\LEVODOPA
     Indication: PARKINSON^S DISEASE
     Route: 048
  4. LEVODOPA-CARBIDOPA-ENTACAPONE TEVA [Suspect]
     Active Substance: CARBIDOPA\ENTACAPONE\LEVODOPA
     Dosage: STRENGTH: (100/25/200) MG
     Route: 065

REACTIONS (3)
  - Product substitution issue [None]
  - Neuromuscular blockade [Unknown]
  - On and off phenomenon [Unknown]
